FAERS Safety Report 4494221-X (Version None)
Quarter: 2004Q4

REPORT INFORMATION
  Report Type: 
  Country: None (occurrence: None)
  Receive Date: 20041102
  Receipt Date: 20041019
  Transmission Date: 20050328
  Serious: Yes (Hospitalization)
  Sender: FDA-Public Use
  Company Number: 209773

PATIENT
  Age: 47 Year
  Sex: Female
  Weight: 76 kg

DRUGS (1)
  1. XOLAIR [Suspect]
     Indication: ASTHMA
     Dosage: 300 MG, 1 /MONTH, SUBCUTANEOUS
     Route: 058

REACTIONS (6)
  - ASTHMA [None]
  - CHEST PAIN [None]
  - DISEASE PROGRESSION [None]
  - DRUG INEFFECTIVE [None]
  - HEADACHE [None]
  - HYPERTENSION [None]
